FAERS Safety Report 8079313-0 (Version None)
Quarter: 2012Q1

REPORT INFORMATION
  Report Type: 
  Country: None (occurrence: None)
  Receive Date: 20120128
  Receipt Date: 20110821
  Transmission Date: 20120608
  Serious: No
  Sender: FDA-Public Use
  Company Number: US-ABBOTT-11P-163-0848374-00

PATIENT
  Age: 21 Year
  Sex: Female

DRUGS (5)
  1. PREDNISONE TAB [Concomitant]
     Indication: PRODUCT USED FOR UNKNOWN INDICATION
  2. HUMIRA [Suspect]
     Indication: COLITIS ULCERATIVE
     Dosage: START DOSE
     Dates: start: 20110806
  3. APRISO [Concomitant]
     Indication: PRODUCT USED FOR UNKNOWN INDICATION
  4. HUMIRA [Suspect]
     Dates: start: 20110820
  5. IMURAN [Concomitant]
     Indication: PRODUCT USED FOR UNKNOWN INDICATION

REACTIONS (2)
  - INJECTION SITE HAEMATOMA [None]
  - INJECTION SITE URTICARIA [None]
